FAERS Safety Report 8515526-9 (Version None)
Quarter: 2012Q3

REPORT INFORMATION
  Report Type: 
  Country: None (occurrence: None)
  Receive Date: 20120717
  Receipt Date: 20120709
  Transmission Date: 20120928
  Serious: Yes (Hospitalization)
  Sender: FDA-Public Use
  Company Number: US-JNJFOC-20120704188

PATIENT
  Sex: Male
  Weight: 86.18 kg

DRUGS (8)
  1. LEXAPRO [Concomitant]
     Route: 048
  2. TOCOPHEROL CONCENTRATE CAP [Concomitant]
     Route: 048
  3. REMICADE [Suspect]
     Route: 042
     Dates: start: 20110101
  4. PENTASA [Concomitant]
     Indication: CROHN'S DISEASE
     Route: 048
  5. REMICADE [Suspect]
     Route: 042
     Dates: start: 20120101
  6. SEROQUEL [Concomitant]
     Route: 048
  7. MAGNESIUM OXIDE [Concomitant]
     Route: 048
  8. REMICADE [Suspect]
     Indication: CROHN'S DISEASE
     Route: 042
     Dates: end: 20110101

REACTIONS (5)
  - ILEOSTOMY [None]
  - FISTULA [None]
  - WEIGHT INCREASED [None]
  - FATIGUE [None]
  - ADVERSE EVENT [None]
